FAERS Safety Report 14562603 (Version 1)
Quarter: 2018Q1

REPORT INFORMATION
  Report Type: Spontaneous
  Country: US (occurrence: US)
  Receive Date: 20180221
  Receipt Date: 20180221
  Transmission Date: 20180509
  Serious: No
  Sender: FDA-Public Use
  Company Number: None

PATIENT
  Age: 64 Year
  Sex: Female

DRUGS (1)
  1. IBRANCE [Suspect]
     Active Substance: PALBOCICLIB
     Indication: BREAST CANCER FEMALE
     Route: 048
     Dates: start: 20180201, end: 20180220

REACTIONS (6)
  - Hot flush [None]
  - Feeling cold [None]
  - Rash [None]
  - Heart rate irregular [None]
  - Headache [None]
  - Dyspepsia [None]

NARRATIVE: CASE EVENT DATE: 20180221
